FAERS Safety Report 23326927 (Version 1)
Quarter: 2023Q4

REPORT INFORMATION
  Report Type: Spontaneous
  Country: US (occurrence: None)
  Receive Date: 20231220
  Receipt Date: 20231220
  Transmission Date: 20240110
  Serious: No
  Sender: FDA-Public Use
  Company Number: None

PATIENT
  Age: 56 Year
  Sex: Female
  Weight: 96.75 kg

DRUGS (13)
  1. SUNOSI [Suspect]
     Active Substance: SOLRIAMFETOL
     Indication: Somnolence
     Route: 048
     Dates: start: 20231027, end: 20231031
  2. DEVICE [Concomitant]
     Active Substance: DEVICE
  3. SPIRONOLACTONE [Concomitant]
     Active Substance: SPIRONOLACTONE
  4. NORVASC [Concomitant]
     Active Substance: AMLODIPINE BESYLATE
  5. CELEXA [Concomitant]
     Active Substance: CITALOPRAM HYDROBROMIDE
  6. BUPROPION [Concomitant]
     Active Substance: BUPROPION
  7. CABERGOLINE [Concomitant]
     Active Substance: CABERGOLINE
  8. VITAMIN D NOS [Concomitant]
     Active Substance: VITAMIN D NOS
  9. VITAMIN B12 [Concomitant]
     Active Substance: CYANOCOBALAMIN
  10. MELATONIN [Concomitant]
     Active Substance: MELATONIN
  11. VITAMINS [Concomitant]
     Active Substance: VITAMINS
  12. LASIX [Concomitant]
     Active Substance: FUROSEMIDE
  13. ARMODAFINIL [Concomitant]

REACTIONS (7)
  - Dry mouth [None]
  - Skin texture abnormal [None]
  - Tongue disorder [None]
  - Oral disorder [None]
  - Tongue dry [None]
  - Taste disorder [None]
  - Drug ineffective [None]

NARRATIVE: CASE EVENT DATE: 20231028
